FAERS Safety Report 6727648-3 (Version None)
Quarter: 2010Q2

REPORT INFORMATION
  Report Type: 
  Country: None (occurrence: None)
  Receive Date: 20100517
  Receipt Date: 20100511
  Transmission Date: 20101027
  Serious: Yes (Other)
  Sender: FDA-Public Use
  Company Number: NL-BAYER-201024893GPV

PATIENT
  Age: 7 Year
  Sex: Female
  Weight: 22 kg

DRUGS (6)
  1. CIPROXIN [Suspect]
     Indication: CYSTITIS
     Dates: start: 20070101
  2. COTRIM [Suspect]
     Indication: CYSTITIS
     Dosage: 240MG/5ML
     Dates: start: 20070101
  3. NITROFURANTOINE [Suspect]
     Indication: CYSTITIS
     Dates: start: 20070101
  4. AUGMENTIN SUGAR FREE POWDER FOR SUSPENSION [Suspect]
     Indication: CYSTITIS
     Dates: start: 20070101
  5. TRIMETHOPRIM [Suspect]
     Indication: CYSTITIS
     Dates: start: 20070101
  6. AMOXICILLIN [Suspect]
     Indication: CYSTITIS
     Dosage: 250MG/5ML
     Dates: start: 20070101

REACTIONS (1)
  - TOOTH DISCOLOURATION [None]
